FAERS Safety Report 9286671 (Version 1)
Quarter: 2013Q2

REPORT INFORMATION
  Report Type: Spontaneous
  Country: US (occurrence: US)
  Receive Date: 20130513
  Receipt Date: 20130513
  Transmission Date: 20140414
  Serious: Yes (Life-Threatening, Other)
  Sender: FDA-Public Use
  Company Number: US-ASTRAZENECA-2013SE32696

PATIENT
  Age: 82 Year
  Sex: Male
  Weight: 70.3 kg

DRUGS (21)
  1. SEROQUEL [Suspect]
     Indication: TRANSIENT ISCHAEMIC ATTACK
     Route: 048
     Dates: end: 201304
  2. SEROQUEL [Suspect]
     Indication: AFFECTIVE DISORDER
     Route: 048
     Dates: end: 201304
  3. SEROQUEL [Suspect]
     Indication: TRANSIENT ISCHAEMIC ATTACK
     Route: 048
     Dates: start: 201304
  4. SEROQUEL [Suspect]
     Indication: AFFECTIVE DISORDER
     Route: 048
     Dates: start: 201304
  5. LISINOPRIL [Suspect]
     Indication: CARDIAC DISORDER
     Route: 048
  6. TOPROL XL [Suspect]
     Indication: CARDIAC DISORDER
     Route: 048
  7. OMEPRAZOLE [Suspect]
     Indication: GASTRIC DISORDER
     Route: 048
  8. REGLAN [Suspect]
     Route: 065
  9. PROLIA [Concomitant]
     Indication: OSTEOPOROSIS
     Dosage: TWICE A YEAR
  10. SIMVASTATIN [Concomitant]
     Indication: CARDIAC DISORDER
  11. BABY ASPIRIN [Concomitant]
  12. FOLTX GENERIC TABS [Concomitant]
     Indication: BLOOD PRESSURE ABNORMAL
  13. KRISTALOSE PACK [Concomitant]
     Indication: LAXATIVE SUPPORTIVE CARE
  14. HYDROXYZINE HCL [Concomitant]
     Indication: GASTRIC DISORDER
  15. CARAFATE SUSPENSION [Concomitant]
     Indication: GASTRIC DISORDER
     Dosage: QID
  16. CALTRATE [Concomitant]
     Indication: OSTEOPOROSIS
     Dosage: DAILY
  17. VITAMIN D [Concomitant]
     Indication: OSTEOPOROSIS
  18. HIGH POTENCY B12 [Concomitant]
  19. FENTANYL PATCH [Concomitant]
     Indication: BACK PAIN
     Dosage: 75 MCG HR
  20. PROMETHAZINE [Concomitant]
     Indication: NAUSEA
  21. PROMETHAZINE [Concomitant]
     Indication: VOMITING

REACTIONS (12)
  - Suicidal ideation [Unknown]
  - Pneumonia aspiration [Unknown]
  - Gastric disorder [Unknown]
  - Abnormal behaviour [Unknown]
  - Choking [Unknown]
  - Dysphagia [Unknown]
  - Weight decreased [Unknown]
  - Tremor [Unknown]
  - Diarrhoea [Unknown]
  - Nausea [Unknown]
  - Vomiting [Unknown]
  - Intentional drug misuse [Unknown]
